FAERS Safety Report 23392664 (Version 1)
Quarter: 2024Q1

REPORT INFORMATION
  Report Type: Spontaneous
  Country: US (occurrence: None)
  Receive Date: 20240111
  Receipt Date: 20240111
  Transmission Date: 20240410
  Serious: Yes (Other)
  Sender: FDA-Public Use
  Company Number: None

PATIENT
  Age: 62 Year
  Sex: Male

DRUGS (4)
  1. HUMIRA [Suspect]
     Active Substance: ADALIMUMAB
     Indication: Crohn^s disease
     Dosage: OTHER QUANTITY : 40MG/0.4ML;?OTHER FREQUENCY : EVERY 2 WEEKS;?
     Dates: start: 20210707
  2. AZATHIOPRINE [Concomitant]
     Active Substance: AZATHIOPRINE
  3. BRILINTA [Concomitant]
     Active Substance: TICAGRELOR
  4. RAPAFLO [Concomitant]
     Active Substance: SILODOSIN

REACTIONS (1)
  - Pulmonary embolism [None]

NARRATIVE: CASE EVENT DATE: 20240106
